FAERS Safety Report 9358894 (Version 1)
Quarter: 2013Q2

REPORT INFORMATION
  Report Type: Spontaneous
  Country: GB (occurrence: GB)
  Receive Date: 20130620
  Receipt Date: 20130620
  Transmission Date: 20140414
  Serious: Yes (Other)
  Sender: FDA-Public Use
  Company Number: GB-B.I. PHARMACEUTICALS,INC./RIDGEFIELD-2013-BI-17697YA

PATIENT
  Age: 68 Year
  Sex: Male
  Weight: 75 kg

DRUGS (5)
  1. TAMSULOSINA [Suspect]
     Indication: PROSTATOMEGALY
     Route: 048
     Dates: start: 20121015, end: 20121102
  2. FEBUXOSTAT [Concomitant]
  3. FEXOFENADINE [Concomitant]
  4. PHENOBARBITAL [Concomitant]
  5. PRIMIDONE [Concomitant]

REACTIONS (3)
  - Erythema multiforme [Unknown]
  - Stevens-Johnson syndrome [Unknown]
  - Blister [Not Recovered/Not Resolved]
